FAERS Safety Report 21213941 (Version 5)
Quarter: 2023Q1

REPORT INFORMATION
  Report Type: Report from Study
  Country: US (occurrence: US)
  Receive Date: 20220816
  Receipt Date: 20230103
  Transmission Date: 20230418
  Serious: Yes (Hospitalization)
  Sender: FDA-Public Use
  Company Number: US-BEIGENE USA INC-BGN-2022-004227

PATIENT

DRUGS (5)
  1. BRUKINSA [Suspect]
     Active Substance: ZANUBRUTINIB
     Indication: Mantle cell lymphoma
     Dosage: 160 MILLIGRAM, BID
     Route: 048
     Dates: start: 20220415
  2. BRUKINSA [Suspect]
     Active Substance: ZANUBRUTINIB
     Dosage: 160 MILLIGRAM, BID
     Route: 048
     Dates: start: 20220415
  3. BRUKINSA [Suspect]
     Active Substance: ZANUBRUTINIB
     Dosage: 160MILLIGRAM, BID
     Dates: start: 20220415
  4. BRUKINSA [Suspect]
     Active Substance: ZANUBRUTINIB
     Dosage: 160MILLIGRAM, BID
     Route: 048
     Dates: start: 20220415
  5. BRUKINSA [Suspect]
     Active Substance: ZANUBRUTINIB
     Dosage: 160 MILLIGRAM, BID
     Route: 048
     Dates: start: 20220415

REACTIONS (14)
  - Gastrooesophageal reflux disease [Unknown]
  - Blood glucose increased [Recovering/Resolving]
  - Influenza [Unknown]
  - Oropharyngeal pain [Unknown]
  - Pyrexia [Unknown]
  - Movement disorder [Unknown]
  - Transient aphasia [Unknown]
  - Memory impairment [Unknown]
  - Anaemia [Unknown]
  - Fatigue [Unknown]
  - Muscular weakness [Recovering/Resolving]
  - Blood magnesium decreased [Unknown]
  - Electrolyte depletion [Unknown]
  - Chest discomfort [Unknown]
